FAERS Safety Report 6700704 (Version 34)
Quarter: 2014Q2

REPORT INFORMATION
  Report Type: Spontaneous
  Country: US (occurrence: US)
  Receive Date: 20080716
  Receipt Date: 20140402
  Transmission Date: 20141212
  Serious: Yes (Hospitalization, Other)
  Sender: FDA-Public Use
  Company Number: PHEH2008US06031

PATIENT
  Age: 48 Year
  Sex: Female
  Weight: 79.9 kg

DRUGS (76)
  1. AREDIA [Suspect]
     Dosage: UNK UKN, UNK
     Route: 042
  2. ZOMETA [Suspect]
     Indication: BREAST CANCER METASTATIC
     Dosage: 4 MG, UNK
     Route: 042
     Dates: end: 200604
  3. CHEMOTHERAPEUTICS NOS [Concomitant]
  4. CLINDAMYCIN [Concomitant]
     Dosage: 1300 MG, QD
     Route: 048
     Dates: end: 20090112
  5. ABRAXANE [Concomitant]
  6. AVASTIN [Concomitant]
  7. DILTIAZEM [Concomitant]
     Dates: end: 20090112
  8. ATENOLOL [Concomitant]
     Dates: end: 20090112
  9. PAXIL [Concomitant]
  10. DECADRON                                /CAN/ [Concomitant]
  11. SENOKOT                                 /USA/ [Concomitant]
  12. DILAUDID [Concomitant]
  13. ALEVE                              /00256202/ [Concomitant]
  14. TAXOTERE [Concomitant]
  15. XELODA [Concomitant]
  16. TAXANES [Concomitant]
  17. ARIMIDEX ^ASTRAZENECA^ [Concomitant]
  18. CIPRO ^MILES^ [Concomitant]
     Dosage: 500 MG, BID
     Route: 048
     Dates: end: 20090112
  19. PACLITAXEL [Concomitant]
  20. QINOLON [Concomitant]
  21. VALTREX [Concomitant]
  22. REGLAN                                  /USA/ [Concomitant]
  23. PERCOCET [Concomitant]
  24. DURAGESIC [Concomitant]
  25. ROCEPHIN [Concomitant]
     Dates: end: 20090112
  26. TORADOL [Concomitant]
  27. NEURONTIN [Concomitant]
  28. ULTRAM [Concomitant]
  29. CARDIZEM [Concomitant]
  30. FAMVIR                                  /NET/ [Concomitant]
  31. ZOVIRAX [Concomitant]
  32. ZITHROMAX ^HEINRICH MACK^ [Concomitant]
  33. SKELAXIN [Concomitant]
     Route: 048
     Dates: end: 20070118
  34. CYCLOBENZAPRINE [Concomitant]
  35. LORAZEPAM [Concomitant]
  36. DEXAMETHASONE [Concomitant]
  37. DOXYCYCLINE [Concomitant]
  38. CHLORHEXIDINE [Concomitant]
  39. LEVAQUIN [Concomitant]
  40. PAROXETINE HYDROCHLORIDE [Concomitant]
  41. OXYCODONE/APAP [Concomitant]
  42. TRIAMCINOLONE [Concomitant]
  43. FUROSEMIDE [Concomitant]
  44. GABAPENTIN [Concomitant]
  45. METOCLOPRAMIDE [Concomitant]
  46. HYDROMORPHONE [Concomitant]
  47. CLOTRIMAZOLE [Concomitant]
  48. ETODOLAC [Concomitant]
  49. TRAMADOL HYDROCHLORIDE [Concomitant]
  50. PREDNISOLONE [Concomitant]
  51. NYSTATIN [Concomitant]
  52. DIFLUCAN [Concomitant]
     Dosage: 100 MG, QD
     Route: 048
     Dates: end: 20090112
  53. VICODIN [Concomitant]
  54. BACTRIM DS [Concomitant]
  55. FOSAMAX [Concomitant]
     Route: 048
  56. OSCAL 500-D [Concomitant]
  57. LODINE [Concomitant]
     Route: 048
  58. ATIVAN [Concomitant]
     Indication: ANXIETY
     Dates: end: 20070118
  59. FLEXERIL [Concomitant]
     Route: 048
     Dates: end: 20070118
  60. LASIX [Concomitant]
     Dosage: 40 MG, QID
     Route: 048
     Dates: end: 20090112
  61. PERIDEX [Concomitant]
  62. BIOTENE [Concomitant]
  63. SENOKOT                                 /UNK/ [Concomitant]
  64. MEGESTROL [Concomitant]
  65. COMPAZINE [Concomitant]
  66. DULCOLAX [Concomitant]
  67. ZOFRAN [Concomitant]
  68. MAALOX                                  /USA/ [Concomitant]
  69. CLEOCIN [Concomitant]
  70. VANCOCIN [Concomitant]
  71. LOPRESSOR [Concomitant]
     Dosage: 50 MG, BID
     Route: 048
  72. ANASTROZOLE [Concomitant]
     Dosage: 1 MG
  73. CYMBALTA [Concomitant]
  74. METOPROLOL TARTRATE [Concomitant]
     Dosage: 50 MG, BID
  75. SENNA-GEN [Concomitant]
     Dosage: 8.65 MG, DAILY
  76. DARVOCET-N [Concomitant]

REACTIONS (200)
  - Breast cancer recurrent [Unknown]
  - Oestrogen receptor assay positive [Unknown]
  - Melanocytic naevus [Unknown]
  - Urinary retention [Unknown]
  - Wheelchair user [Unknown]
  - Blood glucose increased [Unknown]
  - Blood glucose decreased [Unknown]
  - Blood urea nitrogen/creatinine ratio increased [Unknown]
  - Macule [Unknown]
  - Acanthoma [Unknown]
  - Chronic sinusitis [Unknown]
  - Sensory disturbance [Unknown]
  - Body temperature fluctuation [Unknown]
  - Paraesthesia [Unknown]
  - Abscess [Recovering/Resolving]
  - Catheter site haematoma [Recovering/Resolving]
  - Thyroid cyst [Unknown]
  - Gastroenteritis viral [Unknown]
  - Vomiting [Unknown]
  - Diarrhoea [Unknown]
  - Abdominal pain [Unknown]
  - White blood cell count increased [Unknown]
  - Band neutrophil count increased [Unknown]
  - Device related infection [Unknown]
  - Peripheral vascular disorder [Unknown]
  - Night sweats [Unknown]
  - Dysthymic disorder [Unknown]
  - Cellulitis [Unknown]
  - Diabetes mellitus [Unknown]
  - Cardiac failure congestive [Unknown]
  - Diabetic foot [Unknown]
  - Dental caries [Unknown]
  - Loose tooth [Unknown]
  - Musculoskeletal pain [Unknown]
  - Palpitations [Unknown]
  - Mastication disorder [Unknown]
  - Dysphagia [Unknown]
  - Thyroid neoplasm [Unknown]
  - Goitre [Unknown]
  - Hypokalaemia [Unknown]
  - Tachycardia [Unknown]
  - Exposed bone in jaw [Recovered/Resolved]
  - Toothache [Not Recovered/Not Resolved]
  - Menopausal symptoms [Unknown]
  - Neuritis [Unknown]
  - Spinal osteoarthritis [Unknown]
  - Ligament rupture [Unknown]
  - Osteoarthritis [Unknown]
  - Chest pain [Unknown]
  - Bundle branch block right [Unknown]
  - Phlebitis [Unknown]
  - Lichenoid keratosis [Unknown]
  - Hyperkeratosis [Unknown]
  - Folliculitis [Unknown]
  - Nail dystrophy [Unknown]
  - Injury [Unknown]
  - Contusion [Unknown]
  - Varicose vein [Unknown]
  - Peripheral venous disease [Unknown]
  - Skin haemorrhage [Unknown]
  - Weight increased [Unknown]
  - Neck deformity [Unknown]
  - Exostosis [Unknown]
  - Fracture [Unknown]
  - Foot deformity [Unknown]
  - Ankle deformity [Unknown]
  - Lumbar spine flattening [Unknown]
  - Dyspnoea [Unknown]
  - Large intestine polyp [Unknown]
  - Diverticulum intestinal [Unknown]
  - Metastases to spine [Unknown]
  - Sexual dysfunction [Unknown]
  - Trigeminal neuralgia [Unknown]
  - Spinal compression fracture [Unknown]
  - Intervertebral disc degeneration [Unknown]
  - Gait disturbance [Unknown]
  - Conjunctivitis [Unknown]
  - Dysgeusia [Unknown]
  - Axillary mass [Unknown]
  - Neck mass [Unknown]
  - Intervertebral disc protrusion [Unknown]
  - Tremor [Unknown]
  - Parathyroid gland enlargement [Unknown]
  - Parathyroid tumour benign [Unknown]
  - Post procedural hypothyroidism [Unknown]
  - Hyperparathyroidism [Unknown]
  - Hypothyroidism [Unknown]
  - Joint stiffness [Unknown]
  - Hyperhidrosis [Unknown]
  - Insomnia [Unknown]
  - Electric shock [Unknown]
  - Temperature intolerance [Unknown]
  - Spinal fracture [Unknown]
  - Hyperthyroidism [Unknown]
  - Arthritis [Unknown]
  - Urinary incontinence [Unknown]
  - Joint swelling [Unknown]
  - Autonomic nervous system imbalance [Unknown]
  - Hyperreflexia [Unknown]
  - Patella fracture [Unknown]
  - Compression fracture [Unknown]
  - Neuralgia [Unknown]
  - Dyspnoea paroxysmal nocturnal [Unknown]
  - Skin ulcer [Unknown]
  - Pharyngeal erythema [Unknown]
  - Nasal oedema [Unknown]
  - Autonomic neuropathy [Unknown]
  - Nasopharyngitis [Unknown]
  - Joint crepitation [Unknown]
  - Gingival recession [Unknown]
  - Gingival bleeding [Unknown]
  - Bone loss [Unknown]
  - Gingival inflammation [Unknown]
  - Tooth infection [Unknown]
  - Periodontal disease [Unknown]
  - Bruxism [Unknown]
  - Bone swelling [Unknown]
  - Mouth ulceration [Unknown]
  - Primary sequestrum [Unknown]
  - Osteitis [Unknown]
  - Nerve injury [Unknown]
  - Epistaxis [Unknown]
  - Proteinuria [Unknown]
  - Transient ischaemic attack [Unknown]
  - Thrombosis [Unknown]
  - Palmar-plantar erythrodysaesthesia syndrome [Unknown]
  - Exostosis of jaw [Unknown]
  - Osteolysis [Unknown]
  - Erythema [Unknown]
  - Discomfort [Unknown]
  - Pulpitis dental [Unknown]
  - Bone disorder [Unknown]
  - Hypoaesthesia [Unknown]
  - Atelectasis [Unknown]
  - Metastases to chest wall [Unknown]
  - Lymphadenopathy [Unknown]
  - Oral disorder [Unknown]
  - Skin infection [Unknown]
  - Urinary tract obstruction [Unknown]
  - Motor neurone disease [Unknown]
  - Bladder dysfunction [Unknown]
  - Spinal deformity [Unknown]
  - Spinal column stenosis [Unknown]
  - Vertebral foraminal stenosis [Unknown]
  - Osteosclerosis [Unknown]
  - Myocardial infarction [Unknown]
  - Cerebrovascular accident [Unknown]
  - Synovitis [Unknown]
  - Tongue ulceration [Unknown]
  - Clostridium difficile colitis [Unknown]
  - Sputum discoloured [Unknown]
  - Breast inflammation [Unknown]
  - Bone fragmentation [Unknown]
  - Electrolyte imbalance [Unknown]
  - Nausea [Unknown]
  - Mucosal inflammation [Unknown]
  - Gingival ulceration [Unknown]
  - Catheter site infection [Unknown]
  - Osteonecrosis of jaw [Unknown]
  - General physical health deterioration [Unknown]
  - Emotional distress [Unknown]
  - Anxiety [Unknown]
  - Deformity [Unknown]
  - Infection [Unknown]
  - Pain in jaw [Unknown]
  - Dyskinesia [Unknown]
  - Spinal pain [Unknown]
  - Hypertension [Unknown]
  - Neurogenic bladder [Unknown]
  - Osteomyelitis [Unknown]
  - Meningitis [Unknown]
  - Neuropathy peripheral [Unknown]
  - Jaw fracture [Unknown]
  - Vaginal infection [Unknown]
  - Gastrooesophageal reflux disease [Unknown]
  - Onychomycosis [Unknown]
  - Myalgia [Unknown]
  - Myositis [Unknown]
  - Back pain [Unknown]
  - Skin lesion [Unknown]
  - Lacrimation increased [Unknown]
  - Ear pain [Unknown]
  - Oral candidiasis [Unknown]
  - Arthralgia [Unknown]
  - Upper respiratory tract infection [Unknown]
  - Dysuria [Unknown]
  - Blood urine present [Unknown]
  - Pain [Unknown]
  - Depression [Unknown]
  - External ear disorder [Unknown]
  - Muscle spasms [Recovered/Resolved with Sequelae]
  - Otitis media [Unknown]
  - Bronchitis [Unknown]
  - Cystitis haemorrhagic [Unknown]
  - Squamous cell carcinoma [Unknown]
  - Bone lesion [Unknown]
  - Aortic arteriosclerosis [Unknown]
  - Osteopenia [Unknown]
  - Alopecia [Unknown]
  - Haemorrhoids [Unknown]
